FAERS Safety Report 6669834-7 (Version None)
Quarter: 2010Q2

REPORT INFORMATION
  Report Type: 
  Country: None (occurrence: None)
  Receive Date: 20100406
  Receipt Date: 20100111
  Transmission Date: 20101027
  Serious: No
  Sender: FDA-Public Use
  Company Number: US-ALLERGAN-0906441US

PATIENT
  Age: 24 Year
  Sex: Female

DRUGS (2)
  1. LATISSE [Suspect]
     Indication: GROWTH OF EYELASHES
     Dosage: 0.5 GTT, QHS
     Route: 061
  2. LATISSE [Suspect]
     Dosage: UNK
     Route: 061
     Dates: start: 20091201

REACTIONS (2)
  - MADAROSIS [None]
  - OCULAR HYPERAEMIA [None]
